FAERS Safety Report 26098712 (Version 2)
Quarter: 2025Q4

REPORT INFORMATION
  Report Type: Spontaneous
  Country: EU (occurrence: EU)
  Receive Date: 20251127
  Receipt Date: 20251216
  Transmission Date: 20260118
  Serious: Yes (Hospitalization)
  Sender: JOHNSON AND JOHNSON
  Company Number: None

PATIENT
  Age: 60 Year
  Sex: Female
  Weight: 69 kg

DRUGS (22)
  1. RYBREVANT [Suspect]
     Active Substance: AMIVANTAMAB-VMJW
     Indication: Lung adenocarcinoma
     Dosage: 1400 MG / 3 TIMES PER CYCLE
  2. RYBREVANT [Suspect]
     Active Substance: AMIVANTAMAB-VMJW
     Dosage: 20% DOSE REDUCTION
  3. RYBREVANT [Suspect]
     Active Substance: AMIVANTAMAB-VMJW
     Dosage: C4
  4. CARBOPLATIN [Suspect]
     Active Substance: CARBOPLATIN
     Indication: Lung adenocarcinoma
     Dosage: 700 MG PER CYCLE
  5. CARBOPLATIN [Suspect]
     Active Substance: CARBOPLATIN
     Dosage: C2
  6. CARBOPLATIN [Suspect]
     Active Substance: CARBOPLATIN
     Dosage: C3
  7. CARBOPLATIN [Suspect]
     Active Substance: CARBOPLATIN
     Dosage: 20% DOSE REDUCTION
  8. CARBOPLATIN [Suspect]
     Active Substance: CARBOPLATIN
     Dosage: C4
  9. PEMETREXED [Suspect]
     Active Substance: PEMETREXED
     Indication: Lung adenocarcinoma
     Dosage: 875 MG PER CYCLE
  10. PEMETREXED [Suspect]
     Active Substance: PEMETREXED
     Dosage: C2
  11. PEMETREXED [Suspect]
     Active Substance: PEMETREXED
     Dosage: C3
  12. PEMETREXED [Suspect]
     Active Substance: PEMETREXED
     Dosage: 20% DOSE REDUCTION
  13. PEMETREXED [Suspect]
     Active Substance: PEMETREXED
     Dosage: C4
  14. BISOPROLOL FUMARATE [Concomitant]
     Active Substance: BISOPROLOL FUMARATE
     Indication: Product used for unknown indication
     Dosage: MORNING AND EVENING
  15. VERAPAMIL HYDROCHLORIDE [Concomitant]
     Active Substance: VERAPAMIL HYDROCHLORIDE
     Indication: Obstruction gastric
  16. FOLIC ACID [Concomitant]
     Active Substance: FOLIC ACID
     Indication: Product used for unknown indication
     Dosage: 1 TABLET IN THE MORNING
  17. VITAMIN B12 [Concomitant]
     Active Substance: CYANOCOBALAMIN
     Indication: Product used for unknown indication
     Dosage: EVERY 9 WEEKS (LAST ONE ON 8/07/2025)
  18. OXAZEPAM [Concomitant]
     Active Substance: OXAZEPAM
     Indication: Product used for unknown indication
     Dosage: IN EVENING
  19. DOXYCYCLINE [Concomitant]
     Active Substance: DOXYCYCLINE
     Indication: Product used for unknown indication
     Dosage: 100 MG 2 TABLETS IN THE EVENING
  20. CLOBEX [Concomitant]
     Active Substance: CLOBETASOL PROPIONATE
     Indication: Product used for unknown indication
  21. CHLORHEXIDINE GLUCONATE [Concomitant]
     Active Substance: CHLORHEXIDINE GLUCONATE
     Indication: Product used for unknown indication
     Dosage: 1% FOAMING SOLUTION, 1/DAY ON HANDS AND FEET; SKIN EMOLLIENTS, 1/DAY AFTER SHOWERING
  22. SODIUM BICARBONATE [Concomitant]
     Active Substance: SODIUM BICARBONATE
     Indication: Product used for unknown indication
     Dosage: 1.4%, 4-6/DAY

REACTIONS (3)
  - Aortic thrombosis [Recovering/Resolving]
  - Pneumonia [Unknown]
  - Supraventricular tachycardia [Unknown]

NARRATIVE: CASE EVENT DATE: 20250630
